FAERS Safety Report 17008311 (Version 1)
Quarter: 2019Q4

REPORT INFORMATION
  Report Type: Spontaneous
  Country: CL (occurrence: CL)
  Receive Date: 20191108
  Receipt Date: 20191108
  Transmission Date: 20200122
  Serious: Yes (Hospitalization)
  Sender: FDA-Public Use
  Company Number: CL-SUN PHARMACEUTICAL INDUSTRIES LTD-2019RR-227026

PATIENT
  Age: 45 Year
  Sex: Male

DRUGS (2)
  1. KETOROLAC [Concomitant]
     Active Substance: KETOROLAC TROMETHAMINE
     Indication: RENAL COLIC
     Dosage: 10 MILLIGRAM, TID
     Route: 065
  2. TAMSULOSIN [Suspect]
     Active Substance: TAMSULOSIN
     Indication: RENAL COLIC
     Dosage: 0.4 MILLIGRAM, QD
     Route: 065

REACTIONS (2)
  - Self-medication [Unknown]
  - Priapism [Recovered/Resolved]
